FAERS Safety Report 5278672-1 (Version None)
Quarter: 2007Q1

REPORT INFORMATION
  Report Type: 
  Country: None (occurrence: None)
  Receive Date: 20061213
  Receipt Date: 20060118
  Transmission Date: 20070707
  Serious: Yes (Disabling)
  Sender: FDA-Public Use
  Company Number: 2006UW00874

PATIENT
  Sex: Male

DRUGS (1)
  1. SEROQUEL [Suspect]
     Dates: start: 20020101, end: 20050101

REACTIONS (3)
  - DIABETES MELLITUS NON-INSULIN-DEPENDENT [None]
  - DIABETIC KETOACIDOSIS [None]
  - WEIGHT INCREASED [None]
